FAERS Safety Report 5595790-9 (Version None)
Quarter: 2008Q1

REPORT INFORMATION
  Report Type: 
  Country: None (occurrence: None)
  Receive Date: 20080118
  Receipt Date: 20080110
  Transmission Date: 20080703
  Serious: Yes (Hospitalization)
  Sender: FDA-Public Use
  Company Number: B0503783A

PATIENT
  Age: 9 Year
  Sex: Male
  Weight: 18 kg

DRUGS (7)
  1. IMUREL [Suspect]
     Dosage: 25MG PER DAY
     Route: 048
     Dates: start: 20030401
  2. ADALAT [Suspect]
     Dosage: 10MG PER DAY
     Route: 048
     Dates: start: 20021001, end: 20071201
  3. CORTANCYL [Suspect]
     Route: 048
     Dates: start: 20020301, end: 20030401
  4. LOPRIL [Suspect]
     Dosage: 25MG PER DAY
     Route: 048
     Dates: start: 20030401, end: 20070601
  5. CARVEDILOL [Suspect]
     Indication: CARDIAC FAILURE
     Route: 048
     Dates: start: 20060701
  6. SECTRAL [Suspect]
     Indication: CARDIAC FAILURE
     Route: 048
     Dates: start: 20041001, end: 20060701
  7. LASIX [Suspect]
     Dosage: 20MG PER DAY
     Route: 048
     Dates: start: 20040401

REACTIONS (7)
  - ARTHRALGIA [None]
  - ARTHRITIS [None]
  - EPIPHYSEAL DISORDER [None]
  - EXTRASKELETAL OSSIFICATION [None]
  - GAIT DISTURBANCE [None]
  - NERVE COMPRESSION [None]
  - OSTEONECROSIS [None]
